FAERS Safety Report 23677407 (Version 1)
Quarter: 2024Q1

REPORT INFORMATION
  Report Type: Spontaneous
  Country: US (occurrence: US)
  Receive Date: 20240327
  Receipt Date: 20240327
  Transmission Date: 20240410
  Serious: No
  Sender: FDA-Public Use
  Company Number: US-TEVA-VS-3153806

PATIENT
  Age: 91 Year
  Sex: Female

DRUGS (1)
  1. LIDOCAINE [Suspect]
     Active Substance: LIDOCAINE
     Indication: Post herpetic neuralgia
     Route: 065

REACTIONS (6)
  - Blister [Unknown]
  - Skin reaction [Unknown]
  - Skin erosion [Unknown]
  - Skin disorder [Unknown]
  - Rash [Unknown]
  - Pain [Unknown]
